FAERS Safety Report 5168925-X (Version None)
Quarter: 2006Q4

REPORT INFORMATION
  Report Type: 
  Country: None (occurrence: None)
  Receive Date: 20061211
  Receipt Date: 20061129
  Transmission Date: 20070319
  Serious: Yes (Life-Threatening)
  Sender: FDA-Public Use
  Company Number: GB-AVENTIS-200622270GDDC

PATIENT
  Age: 64 Year
  Sex: Male
  Weight: 80 kg

DRUGS (5)
  1. METRONIDAZOLE [Suspect]
     Indication: GASTROENTERITIS
     Route: 048
     Dates: start: 20061025, end: 20061028
  2. ATORVASTATIN CALCIUM [Concomitant]
     Dates: start: 20050101
  3. MIXTARD                            /00634701/ [Concomitant]
     Indication: DIABETES MELLITUS
     Dosage: DOSE: 33 ML
     Dates: start: 20010101
  4. MIXTARD                            /00634701/ [Concomitant]
     Dosage: DOSE: 36 ML
     Dates: start: 20010101
  5. TAMSULOSIN HCL [Concomitant]
     Dates: start: 20050101

REACTIONS (1)
  - HYPOGLYCAEMIA [None]
